FAERS Safety Report 20394166 (Version 1)
Quarter: 2022Q1

REPORT INFORMATION
  Report Type: Spontaneous
  Country: GB (occurrence: GB)
  Receive Date: 20220129
  Receipt Date: 20220129
  Transmission Date: 20220423
  Serious: Yes (Disabling, Other)
  Sender: FDA-Public Use
  Company Number: None

PATIENT
  Age: 83 Year
  Sex: Female
  Weight: 73.00 kg

DRUGS (8)
  1. CLOPIDOGREL [Suspect]
     Active Substance: CLOPIDOGREL BISULFATE
     Indication: Product used for unknown indication
     Route: 048
  2. ROSUVASTATIN CALCIUM [Concomitant]
     Active Substance: ROSUVASTATIN CALCIUM
     Dosage: TAKE ONE DAILY
     Dates: start: 20211110
  3. AMOXICILLIN [Concomitant]
     Active Substance: AMOXICILLIN
     Dosage: 1 THREE TIMES A DAY
     Dates: start: 20211118
  4. ASPIRIN [Concomitant]
     Active Substance: ASPIRIN
     Dosage: 1 TABLET DAILY
     Dates: start: 20211110, end: 20220113
  5. BISOPROLOL [Concomitant]
     Active Substance: BISOPROLOL
     Dosage: 1 TABLET ONCE DAILY
     Dates: start: 20211110
  6. DIAZEPAM [Concomitant]
     Active Substance: DIAZEPAM
     Dosage: TAKE ONE TABLET THREE TIMES A DAY FOR 3 DAYS
     Dates: start: 20220117
  7. LERCANIDIPINE [Concomitant]
     Active Substance: LERCANIDIPINE
     Dosage: 1 TABLET ONCE A DAY
     Dates: start: 20211110
  8. NICORANDIL [Concomitant]
     Active Substance: NICORANDIL
     Dosage: 1 TABLET TWICE DAILY
     Dates: start: 20211110

REACTIONS (1)
  - Anxiety disorder [Unknown]

NARRATIVE: CASE EVENT DATE: 20220115
